FAERS Safety Report 6593664-8 (Version None)
Quarter: 2010Q1

REPORT INFORMATION
  Report Type: 
  Country: None (occurrence: None)
  Receive Date: 20100222
  Receipt Date: 20091020
  Transmission Date: 20100710
  Serious: Yes (Other)
  Sender: FDA-Public Use
  Company Number: US-BRISTOL-MYERS SQUIBB COMPANY-14823488

PATIENT
  Age: 54 Year
  Sex: Female
  Weight: 107 kg

DRUGS (7)
  1. ORENCIA [Suspect]
     Indication: RHEUMATOID ARTHRITIS
     Dates: start: 20070924
  2. IMURAN [Suspect]
  3. CELEBREX [Concomitant]
  4. HYDROXYCHLOROQUINE [Concomitant]
  5. ZANTAC [Concomitant]
  6. CYMBALTA [Concomitant]
  7. LEVOTHYROXINE SODIUM [Concomitant]

REACTIONS (1)
  - BREAST CANCER [None]
